FAERS Safety Report 6265055-0 (Version None)
Quarter: 2009Q3

REPORT INFORMATION
  Report Type: 
  Country: None (occurrence: None)
  Receive Date: 20090713
  Receipt Date: 20090630
  Transmission Date: 20100115
  Serious: Yes (Other)
  Sender: FDA-Public Use
  Company Number: US-PFIZER INC-2009234941

PATIENT
  Sex: Male

DRUGS (2)
  1. GEODON [Suspect]
  2. ADDERALL 10 [Suspect]

REACTIONS (2)
  - HALLUCINATION [None]
  - PARANOIA [None]
